FAERS Safety Report 8458156-X (Version None)
Quarter: 2012Q2

REPORT INFORMATION
  Report Type: 
  Country: None (occurrence: None)
  Receive Date: 20120622
  Receipt Date: 20120611
  Transmission Date: 20120825
  Serious: Yes (Hospitalization)
  Sender: FDA-Public Use
  Company Number: JP-UCBSA-017439

PATIENT
  Age: 57 Year
  Sex: Female
  Weight: 66 kg

DRUGS (18)
  1. METHOTREXATE [Concomitant]
     Dates: start: 20101228
  2. VALPROATE SODIUM [Concomitant]
     Dates: start: 20100926, end: 20110314
  3. CIMZIA [Suspect]
     Indication: RHEUMATOID ARTHRITIS
     Dosage: C87041
     Route: 058
     Dates: start: 20090607
  4. CIMZIA [Suspect]
     Route: 058
     Dates: start: 20091228, end: 20100804
  5. PREDNISOLONE [Concomitant]
     Dates: start: 20101016
  6. FAMOTIDINE [Concomitant]
     Dates: end: 20100809
  7. TEPRENONE [Concomitant]
     Dates: end: 20100809
  8. OLMESARTAN MEDOXOMIL [Concomitant]
     Dates: start: 20101110
  9. INDOMETHACIN FARNESIL [Concomitant]
     Dates: start: 20080401, end: 20100809
  10. METHOTREXATE [Concomitant]
     Dates: start: 20090517, end: 20100808
  11. CIMZIA [Suspect]
     Route: 058
     Dates: start: 20110420
  12. PREDNISOLONE [Concomitant]
     Dates: start: 20090513, end: 20100809
  13. FAMOTIDINE [Concomitant]
     Dates: start: 20100925
  14. CIMZIA [Suspect]
     Route: 058
     Dates: start: 20101027, end: 20110216
  15. FOLIC ACID [Concomitant]
     Dates: start: 20080401, end: 20100803
  16. ZOLPIDEM TARTRATE [Concomitant]
     Dosage: 5 MG AS NECESSARY
     Dates: end: 20100809
  17. CIMZIA [Suspect]
     Route: 058
     Dates: start: 20110325, end: 20110101
  18. FOLIC ACID [Concomitant]
     Dates: start: 20101223

REACTIONS (2)
  - SUBARACHNOID HAEMORRHAGE [None]
  - CONVULSION [None]
